FAERS Safety Report 10079746 (Version 1)
Quarter: 2014Q2

REPORT INFORMATION
  Report Type: Spontaneous
  Country: US (occurrence: US)
  Receive Date: 20140415
  Receipt Date: 20140415
  Transmission Date: 20141212
  Serious: Yes (Other)
  Sender: FDA-Public Use
  Company Number: US-GLAXOSMITHKLINE-A1068900A

PATIENT
  Age: 54 Year
  Sex: Female

DRUGS (16)
  1. LOVAZA [Suspect]
     Indication: BLOOD TRIGLYCERIDES DECREASED
     Dosage: 2G TWICE PER DAY
     Route: 048
     Dates: start: 200703
  2. CRESTOR [Concomitant]
  3. TELMISARTAN + HYDROCHLOROTHIAZIDE [Concomitant]
  4. TEKTURNA [Concomitant]
  5. MOBIC [Concomitant]
  6. NEXIUM [Concomitant]
  7. SYNTHROID [Concomitant]
  8. SINGULAIR [Concomitant]
  9. ALLEGRA [Concomitant]
  10. VITAMIN D [Concomitant]
  11. KLONOPIN [Concomitant]
  12. PROZAC [Concomitant]
  13. BABY ASPIRIN [Concomitant]
  14. MULTIVITAMIN [Concomitant]
  15. 5-HTP [Concomitant]
  16. CONCURRENT MEDICATIONS [Concomitant]

REACTIONS (1)
  - Diabetes mellitus [Recovering/Resolving]
